FAERS Safety Report 4602814-1 (Version None)
Quarter: 2005Q1

REPORT INFORMATION
  Report Type: 
  Country: None (occurrence: None)
  Receive Date: 20050307
  Receipt Date: 20050222
  Transmission Date: 20050727
  Serious: Yes (Other)
  Sender: FDA-Public Use
  Company Number: 2005031514

PATIENT
  Age: 81 Year
  Sex: Female

DRUGS (17)
  1. ATENOLOL [Suspect]
     Indication: ILL-DEFINED DISORDER
     Dosage: 100 MG, ORAL
     Route: 048
     Dates: end: 20040728
  2. FELODIPINE [Suspect]
     Indication: MYOCARDIAL ISCHAEMIA
     Dosage: 10 MG, ORAL
     Route: 048
     Dates: end: 20040728
  3. ATORVASTATIN CALCIUM [Suspect]
     Indication: METABOLIC DISORDER
     Dosage: 80 MG, ORAL
     Route: 048
     Dates: end: 20040728
  4. FRUSEMIDE INJECTION (FUROSEMIDE) [Suspect]
     Indication: ESSENTIAL HYPERTENSION
     Dosage: SEE IMAGE
     Route: 048
     Dates: end: 20040727
  5. FRUSEMIDE INJECTION (FUROSEMIDE) [Suspect]
     Indication: ESSENTIAL HYPERTENSION
     Dosage: SEE IMAGE
     Route: 048
     Dates: start: 20040727
  6. FOLIC ACID [Suspect]
     Indication: ILL-DEFINED DISORDER
     Dosage: ORAL
     Route: 048
     Dates: end: 20040728
  7. IRBESARTAN [Concomitant]
  8. NICORANDIL (NICORANDIL) [Concomitant]
  9. CLOPIDOGREL BISULFATE [Concomitant]
  10. ACETAMINOPHEN [Concomitant]
  11. RAMIPRIL [Concomitant]
  12. PANTOPRAZOLE (PANTOPRAZOLE) [Concomitant]
  13. QUININE (QUININE) [Concomitant]
  14. ISOSORBIDE DINITRATE [Concomitant]
  15. NITROGLYCERIN [Concomitant]
  16. SIMVASTATIN [Concomitant]
  17. FOSINOPRIL SODIUM (FOSINOPRIL SODIUM) [Concomitant]

REACTIONS (9)
  - ALANINE AMINOTRANSFERASE INCREASED [None]
  - ASPARTATE AMINOTRANSFERASE INCREASED [None]
  - ASTHENIA [None]
  - BACK PAIN [None]
  - BLOOD CREATINE PHOSPHOKINASE INCREASED [None]
  - GAMMA-GLUTAMYLTRANSFERASE INCREASED [None]
  - INTERNATIONAL NORMALISED RATIO INCREASED [None]
  - MYOSITIS [None]
  - PAIN IN EXTREMITY [None]
